FAERS Safety Report 5076324-4 (Version None)
Quarter: 2006Q3

REPORT INFORMATION
  Report Type: 
  Country: None (occurrence: None)
  Receive Date: 20060725
  Receipt Date: 20060425
  Transmission Date: 20061208
  Serious: No
  Sender: FDA-Public Use
  Company Number: 200613351BWH

PATIENT
  Age: 72 Year
  Sex: Female

DRUGS (4)
  1. NEXAVAR [Suspect]
     Indication: NON-SMALL CELL LUNG CANCER
     Dosage: 400 MG, BID, ORAL
     Route: 048
     Dates: start: 20060307
  2. GEMZAR [Suspect]
     Indication: NON-SMALL CELL LUNG CANCER
     Dosage: 1200 MG/M2, TOTAL DAILY
     Dates: start: 20060307
  3. MULTI-VITAMIN [Concomitant]
  4. COMPAZINE [Concomitant]

REACTIONS (5)
  - BLOOD PHOSPHORUS DECREASED [None]
  - EAR PAIN [None]
  - NASAL DISCOMFORT [None]
  - NASAL OEDEMA [None]
  - PAIN IN EXTREMITY [None]
